FAERS Safety Report 7888894-9 (Version None)
Quarter: 2011Q4

REPORT INFORMATION
  Report Type: 
  Country: None (occurrence: None)
  Receive Date: 20111031
  Receipt Date: 20111019
  Transmission Date: 20120403
  Serious: Yes (Other)
  Sender: FDA-Public Use
  Company Number: GB-1188499

PATIENT
  Age: 38 Year
  Sex: Female

DRUGS (2)
  1. MALARONE [Suspect]
     Dosage: ORAL
     Route: 048
     Dates: start: 20110917, end: 20111002
  2. CILOXAN [Suspect]
     Dosage: (OPHTHALMIC)
     Route: 047

REACTIONS (2)
  - DERMATITIS ACNEIFORM [None]
  - DRUG INTERACTION [None]
